FAERS Safety Report 5913554-0 (Version None)
Quarter: 2008Q4

REPORT INFORMATION
  Report Type: 
  Country: None (occurrence: None)
  Receive Date: 20081007
  Receipt Date: 20081001
  Transmission Date: 20090506
  Serious: Yes (Hospitalization)
  Sender: FDA-Public Use
  Company Number: LIT-1008-001

PATIENT
  Age: 63 Year
  Sex: Male
  Weight: 65 kg

DRUGS (2)
  1. BORRAZA-G OINTMENT (TRIBESONIDE + LIDOCAINE) [Suspect]
     Indication: HAEMORRHOIDS
     Dates: start: 20060201, end: 20060324
  2. NERIPROCT OINTMENT (DIFLUCORTOLONE VALERATE + LIDOCAINE) [Suspect]
     Indication: HAEMORRHOIDS
     Dates: start: 20060201, end: 20060324

REACTIONS (2)
  - HEPATITIS ACUTE [None]
  - LIVER DISORDER [None]
